FAERS Safety Report 6274674-7 (Version None)
Quarter: 2009Q3

REPORT INFORMATION
  Report Type: 
  Country: None (occurrence: None)
  Receive Date: 20090721
  Receipt Date: 20070517
  Transmission Date: 20100115
  Serious: Yes (Other)
  Sender: FDA-Public Use
  Company Number: US-ASTRAZENECA-2006UW22169

PATIENT
  Age: 17691 Day
  Sex: Female
  Weight: 139.7 kg

DRUGS (10)
  1. SEROQUEL [Suspect]
     Indication: DEPRESSION
     Dosage: 100 MG
     Route: 048
     Dates: start: 20050301, end: 20060601
  2. SEROQUEL [Suspect]
     Indication: ANXIETY
     Dosage: 100 MG
     Route: 048
     Dates: start: 20050301, end: 20060601
  3. SEROQUEL [Suspect]
     Route: 048
     Dates: start: 20060110
  4. SEROQUEL [Suspect]
     Route: 048
     Dates: start: 20060110
  5. ABILIFY [Concomitant]
     Dosage: 45 MG
     Dates: start: 20060601
  6. REMERON [Concomitant]
     Dosage: 30 MG
     Dates: start: 19950101
  7. PRILOSEC [Concomitant]
     Dates: start: 20001121
  8. ZANAFLEX [Concomitant]
     Dosage: 4 MG, 2 BID
     Dates: start: 20050721
  9. TAMBOCOR [Concomitant]
     Dates: start: 20050721
  10. MIRAPEX [Concomitant]
     Indication: RESTLESS LEGS SYNDROME
     Dates: start: 20050825

REACTIONS (4)
  - DIABETES MELLITUS [None]
  - DIABETES MELLITUS INADEQUATE CONTROL [None]
  - DIABETIC KETOACIDOSIS [None]
  - DIABETIC NEUROPATHY [None]
